FAERS Safety Report 4850387-0 (Version None)
Quarter: 2005Q4

REPORT INFORMATION
  Report Type: 
  Country: None (occurrence: None)
  Receive Date: 20051123
  Receipt Date: 20051024
  Transmission Date: 20060501
  Serious: No
  Sender: FDA-Public Use
  Company Number: 218176

PATIENT
  Age: 61 Year
  Sex: Male
  Weight: 83.9 kg

DRUGS (3)
  1. RAPTIVA [Suspect]
     Indication: PSORIASIS
     Dosage: 0.9 ML, 1/WEEK
  2. DOVONEX [Concomitant]
  3. VIAGRA [Concomitant]

REACTIONS (1)
  - SKIN INFECTION [None]
